FAERS Safety Report 11880352 (Version 1)
Quarter: 2015Q4

REPORT INFORMATION
  Report Type: Other
  Country: TH (occurrence: TH)
  Receive Date: 20151230
  Receipt Date: 20151230
  Transmission Date: 20160305
  Serious: Yes (Hospitalization, Other)
  Sender: FDA-Public Use
  Company Number: TH-ENDO PHARMACEUTICALS INC-2015-005192

PATIENT
  Age: 35 Year
  Sex: Female

DRUGS (1)
  1. PROPYLTHIOURACIL TABLETS 50 MG [Suspect]
     Active Substance: PROPYLTHIOURACIL
     Indication: BASEDOW^S DISEASE
     Route: 065

REACTIONS (4)
  - Chronic kidney disease [Unknown]
  - Pulmonary renal syndrome [Unknown]
  - Glomerulonephritis rapidly progressive [Unknown]
  - Anti-neutrophil cytoplasmic antibody positive vasculitis [Recovered/Resolved]
